FAERS Safety Report 5957137-5 (Version None)
Quarter: 2008Q4

REPORT INFORMATION
  Report Type: 
  Country: None (occurrence: None)
  Receive Date: 20081117
  Receipt Date: 20081117
  Transmission Date: 20090506
  Serious: Yes (Other)
  Sender: FDA-Public Use
  Company Number: None

PATIENT
  Age: 63 Year
  Sex: Female
  Weight: 50.8029 kg

DRUGS (1)
  1. FLUCONAZOLE [Suspect]
     Indication: VULVOVAGINAL MYCOTIC INFECTION
     Dosage: ONE TABLET 150MG ONCE PO
     Route: 048
     Dates: start: 20081104, end: 20081104

REACTIONS (4)
  - DRUG HYPERSENSITIVITY [None]
  - OEDEMA PERIPHERAL [None]
  - PRURITUS [None]
  - RASH [None]
